FAERS Safety Report 7478963-X (Version None)
Quarter: 2011Q2

REPORT INFORMATION
  Report Type: 
  Country: None (occurrence: None)
  Receive Date: 20110513
  Receipt Date: 20110510
  Transmission Date: 20111010
  Serious: Yes (Hospitalization, Other)
  Sender: FDA-Public Use
  Company Number: BR-ABBOTT-09P-020-0610242-00

PATIENT
  Sex: Female
  Weight: 57 kg

DRUGS (5)
  1. HUMIRA [Suspect]
     Dosage: 80 MILLIGRAM INDUCTION DOSE
     Route: 058
  2. MESALAMINE [Concomitant]
     Indication: CROHN'S DISEASE
     Route: 048
     Dates: start: 20070905
  3. HUMIRA [Suspect]
     Route: 058
     Dates: end: 20110325
  4. HUMIRA [Suspect]
     Indication: CROHN'S DISEASE
     Dosage: INDUCTION DOSE
     Route: 058
     Dates: start: 20090401, end: 20090401
  5. HUMIRA [Suspect]
     Route: 058

REACTIONS (3)
  - GASTROINTESTINAL OEDEMA [None]
  - FLATULENCE [None]
  - SMALL INTESTINAL OBSTRUCTION [None]
